FAERS Safety Report 11221090 (Version 1)
Quarter: 2015Q2

REPORT INFORMATION
  Report Type: Spontaneous
  Country: US (occurrence: US)
  Receive Date: 20150626
  Receipt Date: 20150626
  Transmission Date: 20150821
  Serious: No
  Sender: FDA-Public Use
  Company Number: US-BAYER-2015-353663

PATIENT
  Age: 76 Year
  Sex: Female
  Weight: 59 kg

DRUGS (6)
  1. CRESTOR [Concomitant]
     Active Substance: ROSUVASTATIN CALCIUM
  2. OXYTROL FOR WOMEN [Suspect]
     Active Substance: OXYBUTYNIN
     Indication: HYPERTONIC BLADDER
     Dosage: 1 DOSE,ONCE EVERY 4 DAYS
     Route: 061
     Dates: start: 201401
  3. FISH OIL [Concomitant]
     Active Substance: FISH OIL
  4. FOLIC ACID. [Concomitant]
     Active Substance: FOLIC ACID
  5. OPTI SAFE AREDS [Concomitant]
     Route: 047
  6. COENZYME Q10 [Concomitant]
     Active Substance: UBIDECARENONE

REACTIONS (2)
  - Rash macular [Recovered/Resolved]
  - Product use issue [Unknown]

NARRATIVE: CASE EVENT DATE: 201505
